FAERS Safety Report 20551558 (Version 2)
Quarter: 2022Q1

REPORT INFORMATION
  Report Type: Other
  Country: CA (occurrence: CA)
  Receive Date: 20220304
  Receipt Date: 20220318
  Transmission Date: 20220423
  Serious: Yes (Other)
  Sender: FDA-Public Use
  Company Number: CA-CELLTRION INC.-2022CA002413

PATIENT

DRUGS (7)
  1. TRUXIMA [Suspect]
     Active Substance: RITUXIMAB-ABBS
     Indication: Rheumatoid arthritis
     Dosage: 1000 MG
     Route: 042
  2. ATIVAN [Concomitant]
     Active Substance: LORAZEPAM
  3. FOLIC ACID [Concomitant]
     Active Substance: FOLIC ACID
  4. GRAVOL [Concomitant]
     Active Substance: DIMENHYDRINATE
  5. OMEGA 3 [Concomitant]
     Active Substance: CAPSAICIN
  6. PREDNISONE [Concomitant]
     Active Substance: PREDNISONE
     Dosage: 5 MG
  7. TYLENOL [Concomitant]
     Active Substance: ACETAMINOPHEN

REACTIONS (6)
  - Weight fluctuation [Unknown]
  - Abscess rupture [Unknown]
  - Anxiety [Unknown]
  - Drug hypersensitivity [Unknown]
  - Intentional dose omission [Unknown]
  - Therapy cessation [Unknown]
